FAERS Safety Report 18405494 (Version 2)
Quarter: 2020Q4

REPORT INFORMATION
  Report Type: Spontaneous
  Country: SI (occurrence: SI)
  Receive Date: 20201020
  Receipt Date: 20201021
  Transmission Date: 20210114
  Serious: Yes (Hospitalization, Other)
  Sender: FDA-Public Use
  Company Number: SI-PFIZER INC-2020401654

PATIENT
  Age: 72 Year
  Sex: Male

DRUGS (6)
  1. SACUBITRIL/VALSARTAN [Suspect]
     Active Substance: SACUBITRIL\VALSARTAN
     Dosage: 50 MILLIGRAM
     Route: 065
     Dates: start: 202001, end: 202001
  2. PANTOPRAZOLE [Suspect]
     Active Substance: PANTOPRAZOLE
     Dosage: UNK
     Route: 065
  3. ATORVASTATIN CALCIUM. [Suspect]
     Active Substance: ATORVASTATIN CALCIUM
     Dosage: UNK
     Route: 065
  4. BISOPROLOL [Suspect]
     Active Substance: BISOPROLOL
     Dosage: UNK
     Route: 065
  5. SACUBITRIL/VALSARTAN [Suspect]
     Active Substance: SACUBITRIL\VALSARTAN
     Dosage: UNK
     Route: 065
     Dates: start: 201907, end: 201911
  6. FUROSEMIDE. [Suspect]
     Active Substance: FUROSEMIDE
     Dosage: UNK
     Route: 065

REACTIONS (8)
  - Cardiac failure [Recovered/Resolved]
  - Hypotension [Recovered/Resolved]
  - Oliguria [Unknown]
  - Weight decreased [Recovered/Resolved]
  - Hypotension [Recovered/Resolved]
  - Metabolic acidosis [Unknown]
  - Hyperkalaemia [Unknown]
  - Anaemia [Unknown]

NARRATIVE: CASE EVENT DATE: 201911
